FAERS Safety Report 18786229 (Version 1)
Quarter: 2021Q1

REPORT INFORMATION
  Report Type: Report from Study
  Country: JP (occurrence: JP)
  Receive Date: 20210125
  Receipt Date: 20210125
  Transmission Date: 20210419
  Serious: Yes (Hospitalization)
  Sender: FDA-Public Use
  Company Number: JP-SHIRE-JP201409174

PATIENT
  Age: 4 Year
  Sex: Male

DRUGS (43)
  1. VELAGLUCERASE ALFA [Suspect]
     Active Substance: VELAGLUCERASE ALFA
     Indication: GAUCHER^S DISEASE TYPE II
     Dosage: 60 IU, 1X/2WKS (1X/3WKS ON OCCASION)
     Route: 041
     Dates: start: 20141024
  2. PHENOBARBITAL. [Concomitant]
     Active Substance: PHENOBARBITAL
     Indication: GAUCHER^S DISEASE
     Dosage: 50?170 MG, UNKNOWN
     Route: 048
     Dates: end: 20190626
  3. MORPHINE HYDROCHLORIDE [Concomitant]
     Active Substance: MORPHINE HYDROCHLORIDE
     Dosage: 18 MG, UNKNOWN
     Route: 048
     Dates: start: 20161124, end: 20161207
  4. GABAPEN [Concomitant]
     Active Substance: GABAPENTIN
     Indication: GAUCHER^S DISEASE
     Dosage: 800 MG, UNKNOWN
     Route: 048
     Dates: start: 20160526, end: 20170124
  5. GABAPEN [Concomitant]
     Active Substance: GABAPENTIN
     Dosage: 1000 MG, UNK
     Dates: start: 20170125, end: 20170418
  6. PULSMARIN A [Concomitant]
     Active Substance: AMBROXOL HYDROCHLORIDE
     Indication: GAUCHER^S DISEASE
     Dosage: 345 MG, UNKNOWN
     Route: 048
     Dates: start: 20160720, end: 20170720
  7. CERCINE [Concomitant]
     Active Substance: DIAZEPAM
     Indication: GAUCHER^S DISEASE
     Dosage: 12 ML/DAY
     Route: 048
     Dates: end: 20150501
  8. RISPERDAL [Concomitant]
     Active Substance: RISPERIDONE
     Indication: GAUCHER^S DISEASE
     Dosage: 1.2 MG/DAY
     Route: 048
  9. GASMOTIN [Concomitant]
     Active Substance: MOSAPRIDE CITRATE
     Indication: PRODUCT USED FOR UNKNOWN INDICATION
     Dosage: 8 MG/DAY
     Route: 048
  10. L CARTIN FF [Concomitant]
     Active Substance: LEVOCARNITINE
     Indication: PROPHYLAXIS
     Dosage: 200 MG/DAY
     Route: 048
     Dates: start: 20141230, end: 20190704
  11. NOBELBAR [Concomitant]
     Active Substance: PHENOBARBITAL SODIUM
     Indication: GAUCHER^S DISEASE
     Dosage: 250 MILLIGRAM, UNKNOWN
     Route: 042
     Dates: start: 20161230, end: 20170109
  12. MUCOSOLVAN [Concomitant]
     Active Substance: AMBROXOL HYDROCHLORIDE
     Indication: GAUCHER^S DISEASE
     Dosage: 270?345 MG/DAY
     Route: 048
     Dates: end: 20160720
  13. WINTERMIN                          /00011902/ [Concomitant]
     Dosage: 35 MILLIGRAM, UNKNOWN
     Route: 048
     Dates: start: 20180418
  14. PHENOBARBITAL. [Concomitant]
     Active Substance: PHENOBARBITAL
     Dosage: 120 MILLIGRAM, UNKNOWN
     Route: 048
     Dates: start: 20170110
  15. PHENOBARBITAL. [Concomitant]
     Active Substance: PHENOBARBITAL
     Dosage: 180 MILLIGRAM, UNKNOWN
     Route: 048
     Dates: start: 20190627
  16. HORIZON [Concomitant]
     Active Substance: DIAZEPAM
     Indication: GAUCHER^S DISEASE
     Dosage: 7.5 MG, UNKNOWN
     Dates: start: 20150502
  17. TERNELIN [Concomitant]
     Active Substance: TIZANIDINE
     Dosage: UNK
  18. KEFRAL [Concomitant]
     Active Substance: CEFACLOR
     Indication: PROPHYLAXIS
     Dosage: 150 MG, 1X/DAY:QD
     Route: 048
  19. L CARTIN FF [Concomitant]
     Active Substance: LEVOCARNITINE
     Indication: GAUCHER^S DISEASE
  20. BAKTAR [Concomitant]
     Active Substance: SULFAMETHOXAZOLE\TRIMETHOPRIM
     Indication: PROPHYLAXIS
     Dosage: 0.27 GRAM, QD
     Route: 048
     Dates: start: 20151015
  21. MORPHINE HYDROCHLORIDE [Concomitant]
     Active Substance: MORPHINE HYDROCHLORIDE
     Indication: GAUCHER^S DISEASE
     Dosage: 60 MG, UNKNOWN
     Route: 048
     Dates: start: 20161012, end: 20161025
  22. PULSMARIN A [Concomitant]
     Active Substance: AMBROXOL HYDROCHLORIDE
     Dosage: 450 MG, UNKNOWN
     Route: 048
     Dates: start: 20180110, end: 20190417
  23. PULSMARIN A [Concomitant]
     Active Substance: AMBROXOL HYDROCHLORIDE
     Dosage: 540 MG, UNKNOWN
     Route: 048
     Dates: start: 20190418
  24. LANDSEN [Concomitant]
     Active Substance: CLONAZEPAM
     Indication: GAUCHER^S DISEASE
     Dosage: 0.1MG?0.5MG
     Route: 048
     Dates: start: 20190406
  25. CERCINE [Concomitant]
     Active Substance: DIAZEPAM
     Dosage: 7.5 MILLIGRAM
     Route: 048
  26. TERNELIN [Concomitant]
     Active Substance: TIZANIDINE
     Indication: GAUCHER^S DISEASE
     Dosage: 0.9?3.2 MG/DAY
     Route: 048
  27. FENTOS [Concomitant]
     Active Substance: FENTANYL
     Dosage: 2 MG/DAY
     Route: 062
     Dates: start: 20160928, end: 20161011
  28. PHENOBARBITAL. [Concomitant]
     Active Substance: PHENOBARBITAL
     Dosage: 180 MILLIGRAM, UNKNOWN
     Route: 048
     Dates: start: 20161203
  29. ALFAROL [Concomitant]
     Active Substance: ALFACALCIDOL
     Indication: PROPHYLAXIS
     Dosage: 0.5 UG, 1X/DAY:QD
     Route: 048
     Dates: start: 20150306
  30. PULSMARIN A [Concomitant]
     Active Substance: AMBROXOL HYDROCHLORIDE
     Dosage: 390 MG, UNKNOWN
     Route: 048
     Dates: start: 20160721, end: 20180109
  31. FENTOS [Concomitant]
     Active Substance: FENTANYL
     Indication: GAUCHER^S DISEASE
     Dosage: 3 MG/DAY
     Route: 062
     Dates: end: 20160927
  32. HORIZON [Concomitant]
     Active Substance: DIAZEPAM
     Indication: PRODUCT USED FOR UNKNOWN INDICATION
  33. MORPHINE HYDROCHLORIDE [Concomitant]
     Active Substance: MORPHINE HYDROCHLORIDE
     Dosage: 36 MG, UNKNOWN
     Route: 048
     Dates: start: 20161026, end: 20161108
  34. MORPHINE HYDROCHLORIDE [Concomitant]
     Active Substance: MORPHINE HYDROCHLORIDE
     Dosage: 9 MG, UNKNOWN
     Route: 048
     Dates: start: 20161208, end: 20170221
  35. GABAPEN [Concomitant]
     Active Substance: GABAPENTIN
     Indication: GAUCHER^S DISEASE
     Dosage: 5.6 ML?16.0 ML, UNKNOWN
     Route: 048
     Dates: start: 20160517, end: 20160525
  36. WINTERMIN                          /00011902/ [Concomitant]
     Indication: GAUCHER^S DISEASE
     Dosage: 20 MILLIGRAM, UNKNOWN
     Route: 048
     Dates: end: 20170307
  37. LEBENIN [Concomitant]
     Active Substance: LACTOBACILLUS ACIDOPHILUS\STREPTOCOCCUS FAECAIS
     Indication: PROPHYLAXIS
     Dosage: 1 G/DAY
     Route: 048
  38. HORIZON [Concomitant]
     Active Substance: DIAZEPAM
     Indication: GAUCHER^S DISEASE
     Dosage: 9 MG/DAY
     Route: 048
     Dates: end: 20151228
  39. ATARAX?P                           /00058402/ [Concomitant]
     Active Substance: HYDROXYZINE HYDROCHLORIDE
     Indication: PREMEDICATION
     Dosage: 12.5 MG/DAY
     Route: 042
  40. MORPHINE HYDROCHLORIDE [Concomitant]
     Active Substance: MORPHINE HYDROCHLORIDE
     Dosage: 6 MG, UNKNOWN
     Route: 048
     Dates: start: 20170222, end: 20170307
  41. GABAPEN [Concomitant]
     Active Substance: GABAPENTIN
     Dosage: 1000 MILLIGRAM
     Route: 048
     Dates: start: 20170419
  42. WINTERMIN                          /00011902/ [Concomitant]
     Dosage: 30 MILLIGRAM, UNKNOWN
     Route: 048
     Dates: start: 20170308, end: 20180417
  43. MORPHINE HYDROCHLORIDE [Concomitant]
     Active Substance: MORPHINE HYDROCHLORIDE
     Dosage: 3 MG, UNKNOWN
     Route: 048
     Dates: start: 20170308, end: 20170321

REACTIONS (13)
  - Urinary tract infection [Recovered/Resolved]
  - Myoclonus [Recovered/Resolved]
  - Vomiting [Recovered/Resolved]
  - Urinary tract infection [Recovered/Resolved]
  - Vesicoureteric reflux [Recovered/Resolved]
  - Respiratory syncytial virus infection [Recovered/Resolved]
  - Urinary tract infection [Recovered/Resolved]
  - Pyelonephritis acute [Recovered/Resolved]
  - Hepatic function abnormal [Not Recovered/Not Resolved]
  - Gastritis [Unknown]
  - Upper respiratory tract inflammation [Recovered/Resolved]
  - Hepatic function abnormal [Recovered/Resolved]
  - Urinary tract infection [Recovered/Resolved]

NARRATIVE: CASE EVENT DATE: 20141205
